FAERS Safety Report 5945628-2 (Version None)
Quarter: 2008Q4

REPORT INFORMATION
  Report Type: 
  Country: None (occurrence: None)
  Receive Date: 20081107
  Receipt Date: 20081029
  Transmission Date: 20090506
  Serious: Yes (Hospitalization)
  Sender: FDA-Public Use
  Company Number: JP-ABBOTT-06P-087-0341980-00

PATIENT
  Sex: Male

DRUGS (32)
  1. KALETRA [Suspect]
     Indication: HIV INFECTION
     Route: 048
     Dates: start: 20061101, end: 20070912
  2. NORVIR [Suspect]
     Indication: HIV INFECTION
     Route: 048
     Dates: start: 20040914, end: 20050719
  3. KALETRA [Suspect]
     Indication: HIV INFECTION
     Route: 048
     Dates: start: 20050720, end: 20061031
  4. LAMIVUDINE [Suspect]
     Indication: HIV INFECTION
     Route: 048
     Dates: start: 20040914, end: 20070912
  5. LAMIVUDINE [Suspect]
     Route: 048
     Dates: start: 20030513, end: 20040913
  6. TENOFOVIR [Suspect]
     Indication: HIV INFECTION
     Route: 048
     Dates: start: 20040914, end: 20070912
  7. EFAVIRENZ [Suspect]
     Indication: HIV INFECTION
     Route: 048
     Dates: start: 20050720, end: 20070912
  8. ATAZANAVIR SULFATE [Concomitant]
     Indication: HIV INFECTION
     Route: 048
     Dates: start: 20040914, end: 20050719
  9. CLARITHROMYCIN [Concomitant]
     Indication: OPPORTUNISTIC INFECTION PROPHYLAXIS
     Route: 048
     Dates: start: 20050614
  10. BACTRIM [Concomitant]
     Indication: ANTIFUNGAL PROPHYLAXIS
     Route: 048
     Dates: start: 20010401
  11. HYDROXYZINE HYDROCHLORIDE [Concomitant]
     Indication: INSOMNIA
     Dates: start: 20010401
  12. OXATOMIDE [Concomitant]
     Indication: ECZEMA
     Route: 048
     Dates: start: 20010401, end: 20050912
  13. EKSALB [Concomitant]
     Indication: ECZEMA
     Route: 061
     Dates: start: 20010401
  14. FENOFIBRATE [Concomitant]
     Indication: HYPERLIPIDAEMIA
     Route: 048
     Dates: start: 20011218, end: 20050420
  15. DIFLUPREDNATE [Concomitant]
     Indication: RASH
     Route: 061
     Dates: start: 20020401
  16. KETOCONAZOLE [Concomitant]
     Indication: RASH
     Route: 061
     Dates: start: 20040601
  17. BETAMETHASONE BUTYRATE PROPIONATE [Concomitant]
     Indication: RASH
     Route: 061
     Dates: start: 20050727
  18. OLOPATADINE HYDROCHLORIDE [Concomitant]
     Indication: RASH
     Route: 048
     Dates: start: 20050727
  19. LAMIVUDINE [Concomitant]
     Route: 048
     Dates: start: 20010401, end: 20011008
  20. ROXITHROMYCIN [Concomitant]
     Indication: RASH
     Route: 048
     Dates: start: 20061202
  21. CLINDAMYCIN HCL [Concomitant]
     Indication: RASH
     Route: 061
     Dates: start: 20061202
  22. EMTRICITABINE W/TENOFOVIR [Concomitant]
     Indication: HIV INFECTION
     Route: 048
     Dates: start: 20071016
  23. DARUNAVIR [Concomitant]
     Indication: HIV INFECTION
     Route: 048
     Dates: start: 20071016
  24. RALTEGRAVIR [Concomitant]
     Indication: HIV INFECTION
     Route: 048
     Dates: start: 20080312
  25. CLARITHROMYCIN [Concomitant]
     Indication: OPPORTUNISTIC INFECTION PROPHYLAXIS
     Route: 048
     Dates: start: 20050614, end: 20070912
  26. HYDROCORTISONE [Concomitant]
     Indication: ECZEMA
     Route: 061
     Dates: start: 20010401, end: 20070406
  27. BETAMETHASONE BUTYRATE PROPIONATE [Concomitant]
     Route: 061
     Dates: start: 20050727, end: 20070406
  28. ROXITHROMYCIN [Concomitant]
     Route: 048
     Dates: start: 20061202, end: 20070406
  29. AZITHROMYCIN [Concomitant]
     Indication: OPPORTUNISTIC INFECTION PROPHYLAXIS
     Route: 048
     Dates: start: 20070913
  30. FENOFIBRATE [Concomitant]
     Indication: HYPERTRIGLYCERIDAEMIA
     Route: 048
     Dates: start: 20050421, end: 20070912
  31. ACYCLOVIR [Concomitant]
     Indication: ENCEPHALITIS HERPES
     Route: 048
     Dates: start: 20070912, end: 20070918
  32. CEFTRIAXONE SODIUM HYDRATE [Concomitant]
     Indication: MENINGITIS BACTERIAL
     Route: 042
     Dates: start: 20070912, end: 20070925

REACTIONS (3)
  - GOITRE [None]
  - HYPERTRIGLYCERIDAEMIA [None]
  - MENINGITIS CRYPTOCOCCAL [None]
